FAERS Safety Report 6096090-3 (Version None)
Quarter: 2009Q1

REPORT INFORMATION
  Report Type: 
  Country: None (occurrence: None)
  Receive Date: 20090227
  Receipt Date: 20080902
  Transmission Date: 20090719
  Serious: No
  Sender: FDA-Public Use
  Company Number: A0745393A

PATIENT
  Sex: Female

DRUGS (2)
  1. LAMICTAL [Suspect]
     Indication: DRUG USE FOR UNKNOWN INDICATION
     Route: 065
  2. UNKNOWN [Concomitant]

REACTIONS (6)
  - LYMPHADENOPATHY [None]
  - PAIN IN EXTREMITY [None]
  - RASH [None]
  - RASH MACULAR [None]
  - SKIN BURNING SENSATION [None]
  - SUNBURN [None]
